FAERS Safety Report 22600900 (Version 1)
Quarter: 2023Q2

REPORT INFORMATION
  Report Type: Spontaneous
  Country: US (occurrence: None)
  Receive Date: 20230613
  Receipt Date: 20230613
  Transmission Date: 20230722
  Serious: No
  Sender: FDA-Public Use
  Company Number: None

PATIENT
  Age: 69 Year
  Sex: Female

DRUGS (2)
  1. OPSUMIT [Suspect]
     Active Substance: MACITENTAN
     Indication: Pulmonary arterial hypertension
     Dosage: FREQUENCY : DAILY;?
     Route: 048
     Dates: start: 20230320, end: 20230606
  2. SILDENAFIL [Suspect]
     Active Substance: SILDENAFIL

REACTIONS (5)
  - Generalised oedema [None]
  - Nausea [None]
  - Fatigue [None]
  - Insomnia [None]
  - Therapy interrupted [None]

NARRATIVE: CASE EVENT DATE: 20230606
